FAERS Safety Report 23685728 (Version 2)
Quarter: 2024Q2

REPORT INFORMATION
  Report Type: Report from Study
  Country: NL (occurrence: NL)
  Receive Date: 20240329
  Receipt Date: 20240514
  Transmission Date: 20240716
  Serious: Yes (Hospitalization)
  Sender: FDA-Public Use
  Company Number: NL-AstraZeneca-2024A074076

PATIENT
  Sex: Male
  Weight: 8.6 kg

DRUGS (2)
  1. SYNAGIS [Suspect]
     Active Substance: PALIVIZUMAB
     Indication: Premature baby
     Dosage: 15 MG/KG MONTHLY
     Route: 030
     Dates: start: 20230907
  2. AMOXICILLIN\CLAVULANIC ACID [Concomitant]
     Active Substance: AMOXICILLIN\CLAVULANIC ACID
     Indication: Product used for unknown indication
     Dosage: 50/12,5MG/ML

REACTIONS (4)
  - Illness [Recovered/Resolved]
  - Respiratory tract infection [Recovered/Resolved]
  - Weight decreased [Not Recovered/Not Resolved]
  - Fatigue [Not Recovered/Not Resolved]
